FAERS Safety Report 25245298 (Version 1)
Quarter: 2025Q2

REPORT INFORMATION
  Report Type: Spontaneous
  Country: US (occurrence: None)
  Receive Date: 20250426
  Receipt Date: 20250426
  Transmission Date: 20250716
  Serious: No
  Sender: FDA-CTU
  Company Number: None

PATIENT
  Age: 38 Year
  Sex: Male
  Weight: 74.25 kg

DRUGS (1)
  1. LEXAPRO [Suspect]
     Active Substance: ESCITALOPRAM OXALATE
     Indication: Generalised anxiety disorder
     Dosage: FREQUENCY : DAILY;?
     Route: 048

REACTIONS (31)
  - Dry mouth [None]
  - Night sweats [None]
  - Ejaculation delayed [None]
  - Anxiety [None]
  - Drug ineffective [None]
  - Therapy interrupted [None]
  - Insomnia [None]
  - Erectile dysfunction [None]
  - Penile size reduced [None]
  - Testicular atrophy [None]
  - Genital hypoaesthesia [None]
  - Loss of libido [None]
  - Ejaculation failure [None]
  - Semen volume decreased [None]
  - Derealisation [None]
  - Cognitive disorder [None]
  - Amnesia [None]
  - Aphasia [None]
  - Poverty of thought content [None]
  - Emotional disorder [None]
  - Anhedonia [None]
  - Crying [None]
  - Blood testosterone decreased [None]
  - Alopecia [None]
  - Hair texture abnormal [None]
  - Poor quality sleep [None]
  - Hypoaesthesia [None]
  - Hypoaesthesia [None]
  - Lack of satiety [None]
  - Gingival bleeding [None]
  - Asthenia [None]

NARRATIVE: CASE EVENT DATE: 20231010
